FAERS Safety Report 5993609-5 (Version None)
Quarter: 2008Q4

REPORT INFORMATION
  Report Type: 
  Country: None (occurrence: None)
  Receive Date: 20081212
  Receipt Date: 20081208
  Transmission Date: 20090506
  Serious: Yes (Death, Hospitalization)
  Sender: FDA-Public Use
  Company Number: PHHY2008BR31226

PATIENT
  Age: 83 Year
  Sex: Female

DRUGS (3)
  1. EXELON [Suspect]
     Indication: DEMENTIA ALZHEIMER'S TYPE
     Dosage: UNK, BID
     Route: 048
     Dates: start: 20060101
  2. NIMODIPINE [Concomitant]
     Dosage: 80 MG, BID
     Route: 048
  3. VITAMIN E [Concomitant]
     Indication: MEMORY IMPAIRMENT
     Dosage: UNK, ONCE DAILY
     Route: 048

REACTIONS (4)
  - ANOREXIA [None]
  - DEMENTIA ALZHEIMER'S TYPE [None]
  - DRUG INEFFECTIVE [None]
  - GASTROINTESTINAL TUBE INSERTION [None]
